FAERS Safety Report 24766550 (Version 2)
Quarter: 2025Q1

REPORT INFORMATION
  Report Type: Spontaneous
  Country: CA (occurrence: CA)
  Receive Date: 20241223
  Receipt Date: 20250227
  Transmission Date: 20250408
  Serious: Yes (Life-Threatening, Hospitalization, Disabling, Other)
  Sender: BRISTOL-MYERS SQUIBB COMPANY
  Company Number: CA-BRISTOL-MYERS SQUIBB COMPANY-2024-195832

PATIENT
  Age: 40 Year
  Sex: Female
  Weight: 96 kg

DRUGS (197)
  1. ORENCIA [Suspect]
     Active Substance: ABATACEPT
     Indication: Rheumatoid arthritis
  2. ORENCIA [Suspect]
     Active Substance: ABATACEPT
  3. ORENCIA [Suspect]
     Active Substance: ABATACEPT
  4. ORENCIA [Suspect]
     Active Substance: ABATACEPT
  5. ORENCIA [Suspect]
     Active Substance: ABATACEPT
     Indication: Rheumatoid arthritis
     Route: 040
  6. ORENCIA [Suspect]
     Active Substance: ABATACEPT
     Route: 040
  7. ORENCIA [Suspect]
     Active Substance: ABATACEPT
     Route: 040
  8. TRIAMCINOLONE ACETONIDE [Suspect]
     Active Substance: TRIAMCINOLONE ACETONIDE
     Indication: Rheumatoid arthritis
     Route: 013
  9. MEGLUMINE [Concomitant]
     Active Substance: MEGLUMINE
  10. ACETAMINOPHEN [Concomitant]
     Active Substance: ACETAMINOPHEN
     Indication: Rheumatoid arthritis
  11. ADALIMUMAB [Concomitant]
     Active Substance: ADALIMUMAB
     Indication: Rheumatoid arthritis
     Route: 058
  12. ADALIMUMAB [Concomitant]
     Active Substance: ADALIMUMAB
  13. ADALIMUMAB [Concomitant]
     Active Substance: ADALIMUMAB
     Route: 041
  14. ADALIMUMAB [Concomitant]
     Active Substance: ADALIMUMAB
  15. ADALIMUMAB [Concomitant]
     Active Substance: ADALIMUMAB
     Route: 041
  16. ADALIMUMAB [Concomitant]
     Active Substance: ADALIMUMAB
  17. AIMOVIG [Concomitant]
     Active Substance: ERENUMAB-AOOE
     Indication: Migraine
  18. AIMOVIG [Concomitant]
     Active Substance: ERENUMAB-AOOE
  19. ALENDRONATE SODIUM [Concomitant]
     Active Substance: ALENDRONATE SODIUM
     Indication: Rheumatoid arthritis
  20. ALENDRONATE SODIUM [Concomitant]
     Active Substance: ALENDRONATE SODIUM
  21. ALENDRONATE SODIUM [Concomitant]
     Active Substance: ALENDRONATE SODIUM
     Route: 048
  22. AZATHIOPRINE [Concomitant]
     Active Substance: AZATHIOPRINE
     Indication: Rheumatoid arthritis
  23. CAFFEINE\CHLORPHENIRAMINE\PHENYLPROPANOLAMINE [Concomitant]
     Active Substance: CAFFEINE\CHLORPHENIRAMINE\PHENYLPROPANOLAMINE
     Indication: Rheumatoid arthritis
  24. CANDESARTAN [Concomitant]
     Active Substance: CANDESARTAN
     Indication: Product used for unknown indication
  25. CANDESARTAN [Concomitant]
     Active Substance: CANDESARTAN
     Route: 048
  26. CETIRIZINE HYDROCHLORIDE [Concomitant]
     Active Substance: CETIRIZINE HYDROCHLORIDE
     Indication: Rheumatoid arthritis
  27. COSENTYX [Concomitant]
     Active Substance: SECUKINUMAB
     Indication: Psoriatic arthropathy
  28. DICLOFENAC [Concomitant]
     Active Substance: DICLOFENAC
     Indication: Product used for unknown indication
  29. ERELZI [Concomitant]
     Active Substance: ETANERCEPT-SZZS
     Indication: Rheumatoid arthritis
  30. ERELZI [Concomitant]
     Active Substance: ETANERCEPT-SZZS
     Route: 058
  31. FLUMETHASONE PIVALATE [Concomitant]
     Active Substance: FLUMETHASONE PIVALATE
     Indication: Product used for unknown indication
  32. FLUMETHASONE PIVALATE [Concomitant]
     Active Substance: FLUMETHASONE PIVALATE
  33. FOLIC ACID [Concomitant]
     Active Substance: FOLIC ACID
     Indication: Rheumatoid arthritis
  34. FOLIC ACID [Concomitant]
     Active Substance: FOLIC ACID
  35. FOLIC ACID [Concomitant]
     Active Substance: FOLIC ACID
  36. FOLIC ACID [Concomitant]
     Active Substance: FOLIC ACID
  37. FOLIC ACID [Concomitant]
     Active Substance: FOLIC ACID
  38. FOLIC ACID [Concomitant]
     Active Substance: FOLIC ACID
  39. FOLIC ACID [Concomitant]
     Active Substance: FOLIC ACID
  40. HAIR KERATIN AMINO ACIDS GOLD COMPLEX [Concomitant]
     Active Substance: HAIR KERATIN AMINO ACIDS GOLD COMPLEX
     Indication: Product used for unknown indication
  41. GOLD SODIUM THIOMALATE [Concomitant]
     Active Substance: GOLD SODIUM THIOMALATE
     Indication: Product used for unknown indication
  42. HYDROCORTISONE [Concomitant]
     Active Substance: HYDROCORTISONE
     Indication: Product used for unknown indication
  43. HYDROCORTISONE PROBUTATE [Concomitant]
     Active Substance: HYDROCORTISONE PROBUTATE
     Indication: Rheumatoid arthritis
  44. HYDROXYCHLOROQUINE [Concomitant]
     Active Substance: HYDROXYCHLOROQUINE
     Indication: Rheumatoid arthritis
  45. HYDROXYCHLOROQUINE SULFATE [Concomitant]
     Active Substance: HYDROXYCHLOROQUINE SULFATE
     Indication: Rheumatoid arthritis
  46. HYDROXYCHLOROQUINE SULFATE [Concomitant]
     Active Substance: HYDROXYCHLOROQUINE SULFATE
  47. INFLIXIMAB [Concomitant]
     Active Substance: INFLIXIMAB
     Indication: Rheumatoid arthritis
  48. INFLIXIMAB [Concomitant]
     Active Substance: INFLIXIMAB
  49. INFLIXIMAB [Concomitant]
     Active Substance: INFLIXIMAB
  50. INFLIXIMAB [Concomitant]
     Active Substance: INFLIXIMAB
  51. ISOPROPYL ALCOHOL [Concomitant]
     Active Substance: ISOPROPYL ALCOHOL
     Indication: Product used for unknown indication
  52. ISOPROPYL ALCOHOL [Concomitant]
     Active Substance: ISOPROPYL ALCOHOL
  53. LAMICTAL [Concomitant]
     Active Substance: LAMOTRIGINE
     Indication: Product used for unknown indication
  54. MAGNESIUM CITRATE [Concomitant]
     Active Substance: MAGNESIUM CITRATE
     Indication: Product used for unknown indication
  55. METFORMIN HYDROCHLORIDE [Concomitant]
     Active Substance: METFORMIN HYDROCHLORIDE
     Indication: Product used for unknown indication
  56. METHOTREXATE [Concomitant]
     Active Substance: METHOTREXATE
     Indication: Rheumatoid arthritis
  57. METHYLPREDNISOLONE [Concomitant]
     Active Substance: METHYLPREDNISOLONE
     Indication: Product used for unknown indication
  58. MINOCYCLINE HYDROCHLORIDE [Concomitant]
     Active Substance: MINOCYCLINE HYDROCHLORIDE
     Indication: Rheumatoid arthritis
  59. MYOCHRYSINE [Concomitant]
     Active Substance: GOLD SODIUM THIOMALATE
     Indication: Rheumatoid arthritis
  60. MYOCHRYSINE [Concomitant]
     Active Substance: GOLD SODIUM THIOMALATE
  61. MYRBETRIQ [Concomitant]
     Active Substance: MIRABEGRON
     Indication: Product used for unknown indication
  62. MYRBETRIQ [Concomitant]
     Active Substance: MIRABEGRON
  63. MYRBETRIQ [Concomitant]
     Active Substance: MIRABEGRON
  64. NAPROXEN [Concomitant]
     Active Substance: NAPROXEN
     Indication: Product used for unknown indication
  65. NAPROXEN [Concomitant]
     Active Substance: NAPROXEN
  66. NAPROXEN SODIUM [Concomitant]
     Active Substance: NAPROXEN SODIUM
     Indication: Rheumatoid arthritis
  67. NAPROXEN SODIUM [Concomitant]
     Active Substance: NAPROXEN SODIUM
  68. NICOTINAMIDE [Concomitant]
     Active Substance: NIACINAMIDE
     Indication: Product used for unknown indication
  69. NUCALA [Concomitant]
     Active Substance: MEPOLIZUMAB
     Indication: Product used for unknown indication
  70. OXYCODONE [Concomitant]
     Active Substance: OXYCODONE
     Indication: Product used for unknown indication
  71. OXYCODONE TEREPHTHALATE [Concomitant]
     Active Substance: OXYCODONE TEREPHTHALATE
     Indication: Product used for unknown indication
  72. PERIOGARD [Concomitant]
     Active Substance: CHLORHEXIDINE GLUCONATE
     Indication: Product used for unknown indication
  73. PHTHALYLSULFATHIAZOLE [Concomitant]
     Active Substance: PHTHALYLSULFATHIAZOLE
     Indication: Product used for unknown indication
  74. PHTHALYLSULFATHIAZOLE [Concomitant]
     Active Substance: PHTHALYLSULFATHIAZOLE
  75. PHTHALYLSULFATHIAZOLE [Concomitant]
     Active Substance: PHTHALYLSULFATHIAZOLE
  76. PHTHALYLSULFATHIAZOLE [Concomitant]
     Active Substance: PHTHALYLSULFATHIAZOLE
  77. PHTHALYLSULFATHIAZOLE [Concomitant]
     Active Substance: PHTHALYLSULFATHIAZOLE
  78. HYDROXYCHLOROQUINE DIPHOSPHATE [Concomitant]
     Active Substance: HYDROXYCHLOROQUINE DIPHOSPHATE
     Indication: Rheumatoid arthritis
  79. PREDNISONE [Concomitant]
     Active Substance: PREDNISONE
     Indication: Rheumatoid arthritis
  80. PREDNISONE [Concomitant]
     Active Substance: PREDNISONE
     Route: 048
  81. PREDNISONE [Concomitant]
     Active Substance: PREDNISONE
     Route: 048
  82. PREDNISONE [Concomitant]
     Active Substance: PREDNISONE
  83. PREDNISONE [Concomitant]
     Active Substance: PREDNISONE
     Route: 048
  84. PREDNISONE [Concomitant]
     Active Substance: PREDNISONE
  85. PSEUDOEPHEDRINE [Concomitant]
     Active Substance: PSEUDOEPHEDRINE
     Indication: Rheumatoid arthritis
  86. PSEUDOEPHEDRINE [Concomitant]
     Active Substance: PSEUDOEPHEDRINE
  87. PSEUDOEPHEDRINE [Concomitant]
     Active Substance: PSEUDOEPHEDRINE
  88. RAMIPRIL [Concomitant]
     Active Substance: RAMIPRIL
     Indication: Rheumatoid arthritis
  89. RANITIDINE [Concomitant]
     Active Substance: RANITIDINE
     Indication: Product used for unknown indication
  90. CETIRIZINE HYDROCHLORIDE\PSEUDOEPHEDRINE HYDROCHLORIDE [Concomitant]
     Active Substance: CETIRIZINE HYDROCHLORIDE\PSEUDOEPHEDRINE HYDROCHLORIDE
     Indication: Rheumatoid arthritis
  91. CETIRIZINE HYDROCHLORIDE\PSEUDOEPHEDRINE HYDROCHLORIDE [Concomitant]
     Active Substance: CETIRIZINE HYDROCHLORIDE\PSEUDOEPHEDRINE HYDROCHLORIDE
  92. CETIRIZINE HYDROCHLORIDE\PSEUDOEPHEDRINE HYDROCHLORIDE [Concomitant]
     Active Substance: CETIRIZINE HYDROCHLORIDE\PSEUDOEPHEDRINE HYDROCHLORIDE
  93. CETIRIZINE HYDROCHLORIDE\PSEUDOEPHEDRINE HYDROCHLORIDE [Concomitant]
     Active Substance: CETIRIZINE HYDROCHLORIDE\PSEUDOEPHEDRINE HYDROCHLORIDE
  94. CETIRIZINE HYDROCHLORIDE\PSEUDOEPHEDRINE HYDROCHLORIDE [Concomitant]
     Active Substance: CETIRIZINE HYDROCHLORIDE\PSEUDOEPHEDRINE HYDROCHLORIDE
  95. REMICADE [Concomitant]
     Active Substance: INFLIXIMAB
     Indication: Rheumatoid arthritis
  96. RIBOFLAVIN [Concomitant]
     Active Substance: RIBOFLAVIN
     Indication: Product used for unknown indication
  97. RITUXIMAB [Concomitant]
     Active Substance: RITUXIMAB
     Indication: Rheumatoid arthritis
  98. RITUXIMAB [Concomitant]
     Active Substance: RITUXIMAB
  99. RITUXIMAB [Concomitant]
     Active Substance: RITUXIMAB
  100. RITUXIMAB [Concomitant]
     Active Substance: RITUXIMAB
  101. RITUXIMAB [Concomitant]
     Active Substance: RITUXIMAB
  102. SULFASALAZINE [Concomitant]
     Active Substance: SULFASALAZINE
     Indication: Rheumatoid arthritis
  103. SIMPONI [Concomitant]
     Active Substance: GOLIMUMAB
     Indication: Rheumatoid arthritis
  104. SIMPONI [Concomitant]
     Active Substance: GOLIMUMAB
     Indication: Prostatic specific antigen
     Route: 058
  105. SIMPONI [Concomitant]
     Active Substance: GOLIMUMAB
  106. SIMPONI [Concomitant]
     Active Substance: GOLIMUMAB
  107. SIRUKUMAB [Concomitant]
     Active Substance: SIRUKUMAB
     Indication: Product used for unknown indication
  108. GOLD SODIUM THIOMALATE [Concomitant]
     Active Substance: GOLD SODIUM THIOMALATE
     Indication: Product used for unknown indication
  109. TRAMADOL HYDROCHLORIDE [Concomitant]
     Active Substance: TRAMADOL HYDROCHLORIDE
     Indication: Product used for unknown indication
  110. ACETAMINOPHEN AND CODEINE [Concomitant]
     Active Substance: ACETAMINOPHEN\CODEINE PHOSPHATE
     Indication: Product used for unknown indication
  111. ACTEMRA [Concomitant]
     Active Substance: TOCILIZUMAB
     Indication: Rheumatoid arthritis
     Route: 041
  112. ACTEMRA [Concomitant]
     Active Substance: TOCILIZUMAB
     Route: 041
  113. ACTEMRA [Concomitant]
     Active Substance: TOCILIZUMAB
     Route: 041
  114. ACTEMRA [Concomitant]
     Active Substance: TOCILIZUMAB
     Route: 041
  115. ACTEMRA [Concomitant]
     Active Substance: TOCILIZUMAB
     Route: 041
  116. ACTEMRA [Concomitant]
     Active Substance: TOCILIZUMAB
     Route: 041
  117. ACTEMRA [Concomitant]
     Active Substance: TOCILIZUMAB
     Route: 041
  118. ACTEMRA [Concomitant]
     Active Substance: TOCILIZUMAB
     Route: 041
  119. ACTEMRA [Concomitant]
     Active Substance: TOCILIZUMAB
     Route: 041
  120. ACTEMRA [Concomitant]
     Active Substance: TOCILIZUMAB
     Route: 041
  121. ACTEMRA [Concomitant]
     Active Substance: TOCILIZUMAB
     Route: 041
  122. ACTEMRA [Concomitant]
     Active Substance: TOCILIZUMAB
  123. DICLOFENAC POTASSIUM [Concomitant]
     Active Substance: DICLOFENAC POTASSIUM
     Indication: Product used for unknown indication
  124. DICLOFENAC POTASSIUM [Concomitant]
     Active Substance: DICLOFENAC POTASSIUM
  125. LEFLUNOMIDE [Concomitant]
     Active Substance: LEFLUNOMIDE
     Indication: Rheumatoid arthritis
  126. LEFLUNOMIDE [Concomitant]
     Active Substance: LEFLUNOMIDE
  127. LEFLUNOMIDE [Concomitant]
     Active Substance: LEFLUNOMIDE
  128. LEFLUNOMIDE [Concomitant]
     Active Substance: LEFLUNOMIDE
  129. LEFLUNOMIDE [Concomitant]
     Active Substance: LEFLUNOMIDE
  130. LEFLUNOMIDE [Concomitant]
     Active Substance: LEFLUNOMIDE
  131. ARAVA [Concomitant]
     Active Substance: LEFLUNOMIDE
     Indication: Rheumatoid arthritis
  132. ARAVA [Concomitant]
     Active Substance: LEFLUNOMIDE
     Route: 048
  133. ARAVA [Concomitant]
     Active Substance: LEFLUNOMIDE
     Route: 005
  134. ARAVA [Concomitant]
     Active Substance: LEFLUNOMIDE
     Route: 048
  135. ATOMOXETINE HYDROCHLORIDE [Concomitant]
     Active Substance: ATOMOXETINE HYDROCHLORIDE
     Indication: Migraine
  136. ATOMOXETINE HYDROCHLORIDE [Concomitant]
     Active Substance: ATOMOXETINE HYDROCHLORIDE
  137. BERINERT [Concomitant]
     Active Substance: HUMAN C1-ESTERASE INHIBITOR
     Indication: Product used for unknown indication
  138. BOTULINUM TOXIN TYPE A [Concomitant]
     Active Substance: BOTULINUM TOXIN TYPE A
     Indication: Product used for unknown indication
  139. BUTRANS [Concomitant]
     Active Substance: BUPRENORPHINE
     Indication: Product used for unknown indication
  140. CALCIUM ASCORBATE [Concomitant]
     Active Substance: CALCIUM ASCORBATE
     Indication: Product used for unknown indication
  141. CALCIUM GLUBIONATE [Concomitant]
     Active Substance: CALCIUM GLUBIONATE
     Indication: Product used for unknown indication
  142. CALCIUM CITRATE [Concomitant]
     Active Substance: CALCIUM CITRATE
     Indication: Product used for unknown indication
  143. CELEBREX [Concomitant]
     Active Substance: CELECOXIB
     Indication: Product used for unknown indication
  144. CELEBREX [Concomitant]
     Active Substance: CELECOXIB
  145. CETIRIZINE HYDROCHLORIDE [Concomitant]
     Active Substance: CETIRIZINE HYDROCHLORIDE
     Indication: Rheumatoid arthritis
  146. CIMZIA [Concomitant]
     Active Substance: CERTOLIZUMAB PEGOL
     Indication: Rheumatoid arthritis
  147. CIMZIA [Concomitant]
     Active Substance: CERTOLIZUMAB PEGOL
  148. CIMZIA [Concomitant]
     Active Substance: CERTOLIZUMAB PEGOL
  149. CORTISONE ACETATE [Concomitant]
     Active Substance: CORTISONE ACETATE
     Indication: Rheumatoid arthritis
  150. CORTISONE ACETATE [Concomitant]
     Active Substance: CORTISONE ACETATE
  151. DESOXIMETASONE [Concomitant]
     Active Substance: DESOXIMETASONE
     Indication: Rheumatoid arthritis
  152. DESOXIMETASONE [Concomitant]
     Active Substance: DESOXIMETASONE
  153. DESOXIMETASONE [Concomitant]
     Active Substance: DESOXIMETASONE
  154. DESOXIMETASONE [Concomitant]
     Active Substance: DESOXIMETASONE
  155. DICLOFENAC SODIUM [Concomitant]
     Active Substance: DICLOFENAC SODIUM
     Indication: Product used for unknown indication
     Route: 058
  156. DOMPERIDONE MALEATE [Concomitant]
     Active Substance: DOMPERIDONE MALEATE
     Indication: Product used for unknown indication
  157. ENBREL [Concomitant]
     Active Substance: ETANERCEPT
     Indication: Rheumatoid arthritis
     Route: 058
  158. ENBREL [Concomitant]
     Active Substance: ETANERCEPT
     Route: 058
  159. ENBREL [Concomitant]
     Active Substance: ETANERCEPT
     Route: 058
  160. ERGOCALCIFEROL [Concomitant]
     Active Substance: ERGOCALCIFEROL
     Indication: Product used for unknown indication
  161. FLUMETHASONE [Concomitant]
     Active Substance: FLUMETHASONE
     Indication: Product used for unknown indication
  162. FOSAMAX [Concomitant]
     Active Substance: ALENDRONATE SODIUM
     Indication: Product used for unknown indication
  163. FOSAMAX [Concomitant]
     Active Substance: ALENDRONATE SODIUM
  164. GOLD [Concomitant]
     Active Substance: GOLD
     Indication: Product used for unknown indication
  165. ISOPROPYL ALCOHOL [Concomitant]
     Active Substance: ISOPROPYL ALCOHOL
     Indication: Product used for unknown indication
  166. ISOPROPYL ALCOHOL [Concomitant]
     Active Substance: ISOPROPYL ALCOHOL
  167. TUMS [Concomitant]
     Active Substance: CALCIUM CARBONATE
     Indication: Product used for unknown indication
  168. CHOLECALCIFEROL [Concomitant]
     Active Substance: CHOLECALCIFEROL
     Indication: Product used for unknown indication
  169. STELARA [Concomitant]
     Active Substance: USTEKINUMAB
     Indication: Product used for unknown indication
  170. STELARA [Concomitant]
     Active Substance: USTEKINUMAB
  171. CETIRIZINE HYDROCHLORIDE [Concomitant]
     Active Substance: CETIRIZINE HYDROCHLORIDE
     Indication: Rheumatoid arthritis
  172. CETIRIZINE HYDROCHLORIDE [Concomitant]
     Active Substance: CETIRIZINE HYDROCHLORIDE
  173. CETIRIZINE HYDROCHLORIDE [Concomitant]
     Active Substance: CETIRIZINE HYDROCHLORIDE
  174. CETIRIZINE HYDROCHLORIDE [Concomitant]
     Active Substance: CETIRIZINE HYDROCHLORIDE
  175. CETIRIZINE HYDROCHLORIDE [Concomitant]
     Active Substance: CETIRIZINE HYDROCHLORIDE
  176. METHYLPREDNISOLONE SODIUM SUCCINATE [Concomitant]
     Active Substance: METHYLPREDNISOLONE SODIUM SUCCINATE
     Indication: Product used for unknown indication
  177. ACETAMINOPHEN AND CODEINE [Concomitant]
     Active Substance: ACETAMINOPHEN\CODEINE PHOSPHATE
     Indication: Product used for unknown indication
  178. ALENDRONIC ACID [Concomitant]
     Active Substance: ALENDRONIC ACID
     Indication: Rheumatoid arthritis
     Route: 048
  179. ALENDRONIC ACID [Concomitant]
     Active Substance: ALENDRONIC ACID
  180. ALENDRONIC ACID [Concomitant]
     Active Substance: ALENDRONIC ACID
     Route: 048
  181. ALENDRONIC ACID [Concomitant]
     Active Substance: ALENDRONIC ACID
     Route: 016
  182. ALENDRONIC ACID [Concomitant]
     Active Substance: ALENDRONIC ACID
     Route: 005
  183. TRAMADOL HYDROCHLORIDE [Concomitant]
     Active Substance: TRAMADOL HYDROCHLORIDE
  184. CHLORHEXIDINE GLUCONATE [Concomitant]
     Active Substance: CHLORHEXIDINE GLUCONATE
  185. CHLORHEXIDINE GLUCONATE\ISOPROPYL ALCOHOL [Concomitant]
     Active Substance: CHLORHEXIDINE GLUCONATE\ISOPROPYL ALCOHOL
  186. DEXTROMETHORPHAN [Concomitant]
     Active Substance: DEXTROMETHORPHAN
     Indication: Product used for unknown indication
  187. GOLIMUMAB [Concomitant]
     Active Substance: GOLIMUMAB
     Indication: Rheumatoid arthritis
  188. GOLIMUMAB [Concomitant]
     Active Substance: GOLIMUMAB
     Indication: Prostatic specific antigen
  189. HUMIRA [Concomitant]
     Active Substance: ADALIMUMAB
     Indication: Rheumatoid arthritis
     Route: 058
  190. HUMIRA [Concomitant]
     Active Substance: ADALIMUMAB
     Route: 058
  191. HYRIMOZ [Concomitant]
     Active Substance: ADALIMUMAB-ADAZ
     Indication: Rheumatoid arthritis
     Route: 058
  192. KEVZARA [Concomitant]
     Active Substance: SARILUMAB
     Indication: Product used for unknown indication
  193. TOPIRAMATE [Concomitant]
     Active Substance: TOPIRAMATE
     Indication: Migraine
  194. TOPIRAMATE [Concomitant]
     Active Substance: TOPIRAMATE
  195. TOPIRAMATE [Concomitant]
     Active Substance: TOPIRAMATE
  196. VITAMIN D3 [Concomitant]
     Active Substance: CHOLECALCIFEROL
  197. DICLOFENAC DIETHYLAMINE [Concomitant]
     Active Substance: DICLOFENAC DIETHYLAMINE

REACTIONS (110)
  - Helicobacter infection [Unknown]
  - Hepatic enzyme increased [Unknown]
  - Hepatitis [Unknown]
  - Hypercholesterolaemia [Unknown]
  - Hypersensitivity [Unknown]
  - Hypertension [Unknown]
  - Hypoaesthesia [Unknown]
  - Ill-defined disorder [Unknown]
  - Impaired healing [Unknown]
  - Inflammation [Unknown]
  - Infusion related reaction [Unknown]
  - Injection site reaction [Unknown]
  - Injury [Unknown]
  - Insomnia [Unknown]
  - Irritable bowel syndrome [Unknown]
  - Joint range of motion decreased [Unknown]
  - Joint swelling [Unknown]
  - Lip dry [Unknown]
  - Liver function test increased [Unknown]
  - Liver injury [Unknown]
  - Lower respiratory tract infection [Unknown]
  - Lung disorder [Unknown]
  - Malaise [Unknown]
  - Memory impairment [Unknown]
  - Migraine [Unknown]
  - Mobility decreased [Unknown]
  - Muscle injury [Unknown]
  - Muscle spasms [Unknown]
  - Musculoskeletal pain [Unknown]
  - Musculoskeletal stiffness [Unknown]
  - Nail disorder [Unknown]
  - Nasopharyngitis [Unknown]
  - Nausea [Unknown]
  - Neck pain [Unknown]
  - Night sweats [Unknown]
  - Obesity [Unknown]
  - Onychomadesis [Unknown]
  - Onychomycosis [Unknown]
  - Osteoarthritis [Unknown]
  - Pain [Unknown]
  - Pain in extremity [Unknown]
  - Paraesthesia [Unknown]
  - Pemphigus [Unknown]
  - Pericarditis [Unknown]
  - Peripheral swelling [Unknown]
  - Peripheral venous disease [Unknown]
  - Pneumonia [Unknown]
  - Adverse event [Unknown]
  - Hospitalisation [Unknown]
  - Abdominal discomfort [Unknown]
  - Abdominal distension [Unknown]
  - Abdominal pain upper [Unknown]
  - Alopecia [Unknown]
  - Anti-cyclic citrullinated peptide antibody positive [Unknown]
  - Arthralgia [Unknown]
  - Arthropathy [Unknown]
  - Asthenia [Unknown]
  - Back injury [Unknown]
  - Blepharospasm [Unknown]
  - Blister [Unknown]
  - Blood cholesterol increased [Unknown]
  - Breast cancer stage III [Unknown]
  - Bursitis [Unknown]
  - C-reactive protein abnormal [Unknown]
  - C-reactive protein increased [Unknown]
  - Coeliac disease [Unknown]
  - Condition aggravated [Unknown]
  - Confusional state [Unknown]
  - Depression [Unknown]
  - Diarrhoea [Unknown]
  - Dizziness [Unknown]
  - Drug hypersensitivity [Unknown]
  - Drug ineffective [Unknown]
  - Drug intolerance [Unknown]
  - Drug-induced liver injury [Unknown]
  - Dry mouth [Unknown]
  - Duodenal ulcer perforation [Unknown]
  - Dyspepsia [Unknown]
  - Dyspnoea [Unknown]
  - Epilepsy [Unknown]
  - Facet joint syndrome [Unknown]
  - Fall [Unknown]
  - Fatigue [Unknown]
  - Fibromyalgia [Unknown]
  - Finger deformity [Unknown]
  - Folliculitis [Unknown]
  - Gait inability [Unknown]
  - Gastrointestinal disorder [Unknown]
  - General physical health deterioration [Unknown]
  - Glossodynia [Unknown]
  - Grip strength decreased [Unknown]
  - Hand deformity [Unknown]
  - Headache [Unknown]
  - Gastrooesophageal reflux disease [Unknown]
  - Muscular weakness [Unknown]
  - Psoriatic arthropathy [Unknown]
  - Rash [Unknown]
  - Rheumatoid arthritis [Unknown]
  - Stomatitis [Unknown]
  - Swelling [Unknown]
  - Synovitis [Unknown]
  - Systemic lupus erythematosus [Unknown]
  - Taste disorder [Unknown]
  - Type 2 diabetes mellitus [Unknown]
  - Urticaria [Unknown]
  - Vomiting [Unknown]
  - Weight increased [Unknown]
  - Wheezing [Unknown]
  - Wound [Unknown]
  - Wound infection [Unknown]
